FAERS Safety Report 10667863 (Version 1)
Quarter: 2014Q4

REPORT INFORMATION
  Report Type: Spontaneous
  Country: US (occurrence: None)
  Receive Date: 20141219
  Receipt Date: 20141219
  Transmission Date: 20150529
  Serious: No
  Sender: FDA-Public Use
  Company Number: None

PATIENT
  Age: 31 Year
  Sex: Male

DRUGS (1)
  1. LATUDA [Suspect]
     Active Substance: LURASIDONE HYDROCHLORIDE
     Indication: BIPOLAR II DISORDER
     Dosage: 1 PILL, ONCE DAILY
     Dates: start: 20140601, end: 20141218

REACTIONS (3)
  - Anxiety [None]
  - Initial insomnia [None]
  - Restlessness [None]

NARRATIVE: CASE EVENT DATE: 20141218
